FAERS Safety Report 13221328 (Version 5)
Quarter: 2018Q1

REPORT INFORMATION
  Report Type: Spontaneous
  Country: US (occurrence: US)
  Receive Date: 20170211
  Receipt Date: 20180123
  Transmission Date: 20180508
  Serious: No
  Sender: FDA-Public Use
  Company Number: US-AMGEN-USASP2017018623

PATIENT
  Age: 81 Year
  Sex: Male
  Weight: 76.19 kg

DRUGS (4)
  1. REPATHA [Suspect]
     Active Substance: EVOLOCUMAB
     Indication: HYPERLIPIDAEMIA
     Dosage: 75 MG, Q2WK
     Route: 058
     Dates: start: 20160822
  2. RANITIDINE. [Concomitant]
     Active Substance: RANITIDINE
     Dosage: 150 UNK, QD
     Dates: start: 20170130
  3. LISINOPRIL. [Concomitant]
     Active Substance: LISINOPRIL
     Indication: HYPERTENSION
     Dosage: 5 MG, BID
     Dates: start: 20170104
  4. TAMSULOSIN [Concomitant]
     Active Substance: TAMSULOSIN
     Dosage: 0.4UNK, QD
     Dates: start: 20120305

REACTIONS (1)
  - Off label use [Unknown]
